FAERS Safety Report 7671306-8 (Version None)
Quarter: 2011Q3

REPORT INFORMATION
  Report Type: 
  Country: None (occurrence: None)
  Receive Date: 20110803
  Receipt Date: 20110208
  Transmission Date: 20111222
  Serious: Yes (Hospitalization)
  Sender: FDA-Public Use
  Company Number: 2011SP006021

PATIENT
  Age: 69 Year
  Sex: Male
  Weight: 98.6 kg

DRUGS (9)
  1. ATIVAN [Concomitant]
  2. ALLOPURINOL [Concomitant]
  3. MOXIFLOX [Concomitant]
  4. ACETAMINOPHEN [Concomitant]
  5. TEMOZOLOMIDE [Suspect]
     Indication: ACUTE MYELOID LEUKAEMIA
     Dosage: 440 MG; QD;PO
     Route: 048
     Dates: start: 20110204, end: 20110210
  6. TEMOZOLOMIDE [Suspect]
     Indication: MYELODYSPLASTIC SYNDROME
     Dosage: 440 MG; QD;PO
     Route: 048
     Dates: start: 20110204, end: 20110210
  7. VALTREX [Concomitant]
  8. ONDANSETRON [Concomitant]
  9. RANITIDINE [Concomitant]

REACTIONS (14)
  - OXYGEN SATURATION DECREASED [None]
  - FLUID OVERLOAD [None]
  - FEBRILE NEUTROPENIA [None]
  - STAPHYLOCOCCAL INFECTION [None]
  - FATIGUE [None]
  - CHILLS [None]
  - HEART RATE INCREASED [None]
  - PULMONARY OEDEMA [None]
  - CULTURE POSITIVE [None]
  - BRONCHIAL WALL THICKENING [None]
  - ASTHENIA [None]
  - BLOOD PRESSURE INCREASED [None]
  - COUGH [None]
  - ATELECTASIS [None]
